FAERS Safety Report 5760265-0 (Version None)
Quarter: 2008Q2

REPORT INFORMATION
  Report Type: 
  Country: None (occurrence: None)
  Receive Date: 20080605
  Receipt Date: 20080529
  Transmission Date: 20081010
  Serious: Yes (Hospitalization)
  Sender: FDA-Public Use
  Company Number: US-ABBOTT-08P-163-0454127-00

PATIENT
  Sex: Female
  Weight: 95.34 kg

DRUGS (15)
  1. HUMIRA [Suspect]
     Indication: RHEUMATOID ARTHRITIS
     Route: 058
     Dates: start: 20080301, end: 20080417
  2. HUMIRA [Suspect]
     Route: 058
     Dates: start: 20080529
  3. ATENOLOL [Concomitant]
     Indication: BLOOD PRESSURE
     Route: 048
     Dates: start: 20030101
  4. INSULIN GLARGINE [Concomitant]
     Indication: DIABETES MELLITUS
     Route: 058
     Dates: start: 20050101
  5. ESOMEPRAZOLE MAGNESIUM [Concomitant]
     Indication: GASTROOESOPHAGEAL REFLUX DISEASE
     Route: 048
     Dates: start: 20050101
  6. PREGABALIN [Concomitant]
     Indication: FIBROMYALGIA
     Route: 048
     Dates: start: 20070101
  7. MONTELUKAST SODIUM [Concomitant]
     Indication: HYPERSENSITIVITY
     Route: 048
     Dates: start: 20070101
  8. FOLIC ACID [Concomitant]
     Indication: VITAMIN SUPPLEMENTATION
     Route: 048
     Dates: start: 20070101
  9. LORAZEPAM [Concomitant]
     Indication: ANXIETY
     Route: 048
  10. POTASSIUM CHLORIDE [Concomitant]
     Indication: MINERAL SUPPLEMENTATION
     Route: 048
     Dates: start: 20080301
  11. CARISOPRODOL [Concomitant]
     Indication: FIBROMYALGIA
     Route: 048
     Dates: start: 20070101
  12. METHOTREXATE [Concomitant]
     Indication: RHEUMATOID ARTHRITIS
     Route: 048
     Dates: start: 20070101
  13. IBUROFEN [Concomitant]
     Indication: FIBROMYALGIA
     Route: 048
  14. IBUROFEN [Concomitant]
     Indication: RHEUMATOID ARTHRITIS
  15. POTASSIUM CHLORIDE [Concomitant]
     Indication: BLOOD POTASSIUM DECREASED
     Dosage: ^THREE OR FOUR LITTLE BAGS^
     Route: 042
     Dates: start: 20080401, end: 20080401

REACTIONS (8)
  - ALBUMIN GLOBULIN RATIO DECREASED [None]
  - BLOOD CHLORIDE DECREASED [None]
  - BLOOD UREA NITROGEN/CREATININE RATIO INCREASED [None]
  - INJECTION SITE IRRITATION [None]
  - INJECTION SITE PAIN [None]
  - INTERVERTEBRAL DISC PROTRUSION [None]
  - MEAN PLATELET VOLUME DECREASED [None]
  - WHITE BLOOD CELL COUNT INCREASED [None]
